FAERS Safety Report 22667807 (Version 2)
Quarter: 2023Q4

REPORT INFORMATION
  Report Type: Spontaneous
  Country: US (occurrence: US)
  Receive Date: 20230704
  Receipt Date: 20231012
  Transmission Date: 20240109
  Serious: No
  Sender: FDA-Public Use
  Company Number: US-Vifor (International) Inc.-VIT-2023-04520

PATIENT
  Age: 53 Year
  Sex: Male
  Weight: 83.4 kg

DRUGS (1)
  1. MIRCERA [Suspect]
     Active Substance: METHOXY POLYETHYLENE GLYCOL-EPOETIN BETA
     Indication: Anaemia
     Dosage: DOSE NUMBER: 1, DOSE CATEGORY: DOSE 1
     Dates: start: 20230524, end: 2023

REACTIONS (2)
  - Drug hypersensitivity [Recovered/Resolved]
  - Back pain [Recovered/Resolved]

NARRATIVE: CASE EVENT DATE: 20230526
